FAERS Safety Report 8997044 (Version 3)
Quarter: 2013Q1

REPORT INFORMATION
  Report Type: Spontaneous
  Country: JP (occurrence: None)
  Receive Date: 20121221
  Receipt Date: 20130118
  Transmission Date: 20140127
  Serious: Yes (Hospitalization)
  Sender: FDA-Public Use
  Company Number: 2012MPI00581

PATIENT
  Age: 51 Year
  Sex: Male

DRUGS (8)
  1. BRENTUXIMAB VEDOTIN [Suspect]
     Indication: HODGKIN^S DISEASE
     Dosage: Q21D
     Route: 041
     Dates: start: 20111017, end: 20120905
  2. PREDNISONE (PREDNISONE ACETATE) [Concomitant]
  3. BAKTAR (SULFAMETHOXAZOLE, TRIMETHOPRIM) [Concomitant]
  4. LOXOPROFEN (LOXOPROFEN) [Concomitant]
  5. TEPRENONE (TEPRENONE) [Concomitant]
  6. ALLELOCK (OLOPATADINE HYDROCHLORIDE) [Concomitant]
  7. LAXOBERON (SODIUM PICOSULFATE) [Concomitant]
  8. HIRUDOID (HEPARINOID) [Concomitant]

REACTIONS (24)
  - Herpes zoster disseminated [None]
  - Gait disturbance [None]
  - Back pain [None]
  - Anaemia [None]
  - Thrombocytopenia [None]
  - Neuropathy peripheral [None]
  - Opportunistic infection [None]
  - Lymphopenia [None]
  - Meningitis aseptic [None]
  - Adenovirus infection [None]
  - Rash [None]
  - Muscular weakness [None]
  - Speech disorder [None]
  - Altered state of consciousness [None]
  - Amnesia [None]
  - Asthenia [None]
  - Muscle twitching [None]
  - Encephalitis viral [None]
  - Hepatic enzyme abnormal [None]
  - Drug-induced liver injury [None]
  - Hepatitis viral [None]
  - Tremor [None]
  - Hepatic function abnormal [None]
  - Drug ineffective [None]
